FAERS Safety Report 6668715-2 (Version None)
Quarter: 2010Q2

REPORT INFORMATION
  Report Type: 
  Country: None (occurrence: None)
  Receive Date: 20100406
  Receipt Date: 20100329
  Transmission Date: 20101027
  Serious: Yes (Life-Threatening, Hospitalization)
  Sender: FDA-Public Use
  Company Number: ZA-GENZYME-RENA-1000680

PATIENT
  Sex: Male
  Weight: 83 kg

DRUGS (9)
  1. RENAGEL [Suspect]
     Indication: HYPERPHOSPHATAEMIA
     Dosage: 1.6 G, TID
     Route: 048
     Dates: start: 20091210, end: 20100317
  2. ATENOL [Concomitant]
     Indication: HYPERTENSION
     Dosage: 100 MG, QD
     Route: 065
     Dates: start: 20000101
  3. PURISIS [Concomitant]
     Indication: DRUG USE FOR UNKNOWN INDICATION
     Dosage: UNK
     Route: 065
     Dates: start: 20060101
  4. CARDURA [Concomitant]
     Indication: HYPERTENSION
     Dosage: 4.0 MG, QD
     Route: 065
     Dates: start: 20080101
  5. ZANIDIP [Concomitant]
     Indication: DRUG USE FOR UNKNOWN INDICATION
     Dosage: 10 MG, QD
     Route: 065
     Dates: start: 20070101
  6. SIMVASTATIN [Concomitant]
     Indication: DRUG USE FOR UNKNOWN INDICATION
     Dosage: 20 MG, QD
     Route: 065
     Dates: start: 20050101
  7. PURICOS [Concomitant]
     Indication: GOUT
     Dosage: 100 MG, QD
     Route: 065
     Dates: start: 20050101
  8. NOVOMIX [Concomitant]
     Indication: DIABETES MELLITUS
     Dosage: 35 U, QD
     Route: 065
     Dates: start: 20060101
  9. ECTOTRIN [Concomitant]
     Indication: DRUG USE FOR UNKNOWN INDICATION
     Dosage: UNK
     Route: 065
     Dates: start: 20090101

REACTIONS (5)
  - DYSPHAGIA [None]
  - DYSPNOEA [None]
  - EYE SWELLING [None]
  - LIP SWELLING [None]
  - LOCAL SWELLING [None]
